FAERS Safety Report 22607068 (Version 1)
Quarter: 2023Q2

REPORT INFORMATION
  Report Type: Spontaneous
  Country: EG (occurrence: EG)
  Receive Date: 20230615
  Receipt Date: 20230615
  Transmission Date: 20230722
  Serious: Yes (Other)
  Sender: FDA-Public Use
  Company Number: EG-JNJFOC-20230549885

PATIENT
  Age: 65 Year
  Sex: Male
  Weight: 82 kg

DRUGS (1)
  1. VELCADE [Suspect]
     Active Substance: BORTEZOMIB
     Indication: Plasma cell myeloma
     Dosage: UNK UNK, 1/WEEK
     Route: 065
     Dates: start: 2020

REACTIONS (9)
  - Bone marrow transplant [Unknown]
  - Illness [Unknown]
  - Decubitus ulcer [Unknown]
  - Hypersomnia [Unknown]
  - Infected skin ulcer [Unknown]
  - Skin exfoliation [Unknown]
  - Fatigue [Unknown]
  - Herpes zoster [Unknown]
  - Incorrect dose administered [Unknown]

NARRATIVE: CASE EVENT DATE: 20200101
